FAERS Safety Report 19281353 (Version 8)
Quarter: 2023Q1

REPORT INFORMATION
  Report Type: Report from Study
  Country: AU (occurrence: AU)
  Receive Date: 20210520
  Receipt Date: 20230328
  Transmission Date: 20230417
  Serious: Yes (Other)
  Sender: FDA-Public Use
  Company Number: AU-GLAXOSMITHKLINE-AU2021GSK103919

PATIENT

DRUGS (17)
  1. BELANTAMAB MAFODOTIN [Suspect]
     Active Substance: BELANTAMAB MAFODOTIN
     Indication: Plasma cell myeloma
     Dosage: 1.9 MG/KG, CYC  (2.5 TO 1.9 MG/KG STEPDOWN)
     Route: 042
     Dates: start: 20210504
  2. BORTEZOMIB [Suspect]
     Active Substance: BORTEZOMIB
     Indication: Plasma cell myeloma
     Dosage: UNK
     Dates: start: 20210504
  3. FOSINOPRIL [Concomitant]
     Active Substance: FOSINOPRIL
     Indication: Hypertension
     Dosage: 20 MG, QD
     Route: 048
     Dates: start: 20160601
  4. AMLODIPINE BESYLATE\PERINDOPRIL ARGININE [Concomitant]
     Active Substance: AMLODIPINE BESYLATE\PERINDOPRIL ARGININE
     Indication: Hypertension
     Dosage: 10 MG, QD
     Route: 048
     Dates: start: 20210414
  5. VALACYCLOVIR HYDROCHLORIDE [Concomitant]
     Active Substance: VALACYCLOVIR HYDROCHLORIDE
     Indication: Product used for unknown indication
     Dosage: 500 MG, QD
     Route: 048
     Dates: start: 20210504
  6. TIMOLOL [Concomitant]
     Active Substance: TIMOLOL
     Indication: Ocular discomfort
     Dosage: 5 ML, BID
     Route: 031
     Dates: start: 20210618
  7. ASTRAZENECA COVID-19 VACCINE [Concomitant]
     Active Substance: AZD-1222
     Indication: Immunisation
     Dosage: 1 DF, SINGLE (VIAL)
     Route: 030
     Dates: start: 20210525, end: 20210525
  8. FML [Concomitant]
     Active Substance: FLUOROMETHOLONE
     Indication: Prophylaxis
     Dosage: 1 GTT, BID
     Route: 061
     Dates: start: 20210812
  9. COVERAM [Concomitant]
     Active Substance: AMLODIPINE\PERINDOPRIL
     Indication: Blood pressure measurement
     Dosage: 10 MG, QD
     Route: 048
     Dates: start: 20210809
  10. REFRESH CELLUVISC [Concomitant]
     Active Substance: CARBOXYMETHYLCELLULOSE SODIUM
     Indication: Prophylaxis
     Dosage: 1 DROPS, Q2H
     Route: 031
     Dates: start: 20210504
  11. FLUOROMETHOLONE [Concomitant]
     Active Substance: FLUOROMETHOLONE
     Indication: Prophylaxis
     Dosage: 1 ML, QD
     Route: 031
     Dates: start: 20210929
  12. FUROSEMIDE [Concomitant]
     Active Substance: FUROSEMIDE
     Indication: Dyspnoea
     Dosage: 20 MG, QD
     Route: 048
     Dates: start: 20211011, end: 20220224
  13. FUROSEMIDE [Concomitant]
     Active Substance: FUROSEMIDE
     Dosage: 20 MG, QD
     Route: 048
     Dates: start: 20220224, end: 20221205
  14. FUROSEMIDE [Concomitant]
     Active Substance: FUROSEMIDE
     Dosage: 40 MG, QD
     Route: 048
     Dates: start: 20221206
  15. FUROSEMIDE [Concomitant]
     Active Substance: FUROSEMIDE
     Dosage: 40 MG, BID
     Route: 042
     Dates: start: 20211202, end: 20211202
  16. CEPHALEXIN [Concomitant]
     Active Substance: CEPHALEXIN
     Indication: Cellulitis
     Dosage: 500 MG, Q4D
     Route: 048
     Dates: start: 20211126, end: 20211203
  17. DEXAMETHASONE [Suspect]
     Active Substance: DEXAMETHASONE

REACTIONS (1)
  - Alanine aminotransferase increased [Recovered/Resolved]

NARRATIVE: CASE EVENT DATE: 20210510
